FAERS Safety Report 7989455-3 (Version None)
Quarter: 2011Q4

REPORT INFORMATION
  Report Type: 
  Country: None (occurrence: None)
  Receive Date: 20111219
  Receipt Date: 20111208
  Transmission Date: 20120403
  Serious: Yes (Hospitalization)
  Sender: FDA-Public Use
  Company Number: US-JNJFOC-20111204926

PATIENT
  Sex: Female
  Weight: 51.6 kg

DRUGS (21)
  1. LOPERAMIDE HCL [Concomitant]
  2. TORADOL [Concomitant]
  3. TACROLIMUS [Concomitant]
     Indication: INFLAMMATORY BOWEL DISEASE
  4. PROBIOTICS [Concomitant]
     Indication: INFLAMMATORY BOWEL DISEASE
  5. FOLIC ACID [Concomitant]
  6. VALIUM [Concomitant]
  7. FENTANYL [Concomitant]
  8. OXYCODONE HCL [Concomitant]
  9. ZOFRAN [Concomitant]
  10. IBUPROFEN [Concomitant]
  11. CITALOPRAM [Concomitant]
  12. MAGNESIUM CITRATE [Concomitant]
  13. MESALAMINE [Concomitant]
     Indication: INFLAMMATORY BOWEL DISEASE
  14. BUDESONIDE [Concomitant]
     Indication: INFLAMMATORY BOWEL DISEASE
  15. DILAUDID [Concomitant]
  16. ACETAMINOPHEN [Concomitant]
  17. REMICADE [Suspect]
     Indication: COLITIS ULCERATIVE
     Route: 042
     Dates: start: 20090804, end: 20091022
  18. IBUPROFEN [Concomitant]
  19. COLACE [Concomitant]
  20. CEFOXITIN [Concomitant]
  21. DICYCLOMINE [Concomitant]

REACTIONS (1)
  - COLITIS ULCERATIVE [None]
